FAERS Safety Report 4735169-2 (Version None)
Quarter: 2005Q3

REPORT INFORMATION
  Report Type: 
  Country: None (occurrence: None)
  Receive Date: 20050804
  Receipt Date: 20050721
  Transmission Date: 20060218
  Serious: Yes (Disabling, Other)
  Sender: FDA-Public Use
  Company Number: 2005082327

PATIENT
  Age: 67 Year
  Sex: Male

DRUGS (9)
  1. VIAGRA [Suspect]
     Indication: ERECTILE DYSFUNCTION
     Dosage: (50 MG, AS NECESSARY), ORAL
     Route: 048
     Dates: start: 20000622
  2. LEVITRA [Suspect]
     Indication: ILL-DEFINED DISORDER
     Dosage: ORAL
     Route: 048
  3. CIALIS [Suspect]
     Indication: ILL-DEFINED DISORDER
     Dosage: ORAL
     Route: 048
  4. GLYBURIDE [Concomitant]
  5. GLUCOPHAGE [Concomitant]
  6. ZOLOFT [Concomitant]
  7. AVANDIA (RSOIGLITAZONE MALEATE) [Concomitant]
  8. LISINOPRIL [Concomitant]
  9. VYTORIN [Concomitant]

REACTIONS (4)
  - BLINDNESS [None]
  - OPTIC ISCHAEMIC NEUROPATHY [None]
  - VISION BLURRED [None]
  - VISUAL DISTURBANCE [None]
